FAERS Safety Report 4342427-2 (Version None)
Quarter: 2004Q2

REPORT INFORMATION
  Report Type: 
  Country: None (occurrence: None)
  Receive Date: 20040416
  Receipt Date: 20040406
  Transmission Date: 20050107
  Serious: Yes (Congenital Anomaly)
  Sender: FDA-Public Use
  Company Number: DE-SHR-04-023847

PATIENT
  Sex: Male
  Weight: 4.5 kg

DRUGS (1)
  1. MIRENA [Suspect]
     Dosage: INTRA-UTERINE
     Route: 015

REACTIONS (2)
  - CONGENITAL PYLORIC STENOSIS [None]
  - MATERNAL DRUGS AFFECTING FOETUS [None]
